FAERS Safety Report 16252896 (Version 1)
Quarter: 2019Q2

REPORT INFORMATION
  Report Type: Spontaneous
  Country: US (occurrence: US)
  Receive Date: 20190429
  Receipt Date: 20190429
  Transmission Date: 20190711
  Serious: No
  Sender: FDA-Public Use
  Company Number: US-ELI_LILLY_AND_COMPANY-US201904002079

PATIENT
  Age: 96 Year
  Sex: Female

DRUGS (1)
  1. EMGALITY [Suspect]
     Active Substance: GALCANEZUMAB-GNLM
     Indication: MIGRAINE
     Dosage: 120 MG, OTHER
     Route: 058
     Dates: start: 20190323

REACTIONS (5)
  - Diplopia [Unknown]
  - Cerebral disorder [Unknown]
  - Wrong product administered [Unknown]
  - Metamorphopsia [Unknown]
  - Dizziness [Unknown]

NARRATIVE: CASE EVENT DATE: 20190323
